FAERS Safety Report 14666140 (Version 3)
Quarter: 2018Q3

REPORT INFORMATION
  Report Type: Spontaneous
  Country: US (occurrence: US)
  Receive Date: 20180321
  Receipt Date: 20180824
  Transmission Date: 20181010
  Serious: Yes (Other)
  Sender: FDA-Public Use
  Company Number: US-ELI_LILLY_AND_COMPANY-US201803008055

PATIENT
  Age: 9 Year
  Sex: Male
  Weight: 45.9 kg

DRUGS (8)
  1. LEVOTHYROXINE. [Concomitant]
     Active Substance: LEVOTHYROXINE
     Indication: HORMONE REPLACEMENT THERAPY
     Dosage: 75 MG, UNKNOWN
     Route: 065
  2. HUMATROPE [Suspect]
     Active Substance: SOMATROPIN
     Indication: GROWTH HORMONE DEFICIENCY
     Dosage: 1.8 MG, DAILY
     Route: 058
     Dates: start: 20180227
  3. HUMATROPE [Suspect]
     Active Substance: SOMATROPIN
     Dosage: 1.0 MG, UNKNOWN
     Route: 058
     Dates: start: 20180302
  4. CORTEF [Concomitant]
     Active Substance: HYDROCORTISONE
     Indication: HORMONE REPLACEMENT THERAPY
     Dosage: 5 MG, OTHER (1 TAB A.M., 1/2 TAB AFTERNOON, 1/2 TAB 6 P.M.)
     Route: 065
  5. SOLU?CORTEF [Concomitant]
     Active Substance: HYDROCORTISONE SODIUM SUCCINATE
     Indication: PRODUCT USED FOR UNKNOWN INDICATION
     Dosage: 100 MG, UNKNOWN
     Route: 065
  6. CLARITIN [Concomitant]
     Active Substance: LORATADINE
     Indication: PRODUCT USED FOR UNKNOWN INDICATION
     Dosage: 10 MG, DAILY
     Route: 065
  7. HUMATROPE [Suspect]
     Active Substance: SOMATROPIN
     Dosage: 1.8 MG, DAILY
     Route: 058
  8. DDAVP [Concomitant]
     Active Substance: DESMOPRESSIN ACETATE
     Indication: HORMONE REPLACEMENT THERAPY
     Dosage: 0.2 MG, OTHER (0.2 A.M. AND 0.1 P.M.)
     Route: 065

REACTIONS (2)
  - Oedema [Recovering/Resolving]
  - Blood sodium increased [Unknown]

NARRATIVE: CASE EVENT DATE: 20180302
